FAERS Safety Report 24067666 (Version 1)
Quarter: 2024Q3

REPORT INFORMATION
  Report Type: Spontaneous
  Country: IT (occurrence: IT)
  Receive Date: 20240710
  Receipt Date: 20240710
  Transmission Date: 20241016
  Serious: Yes (Other)
  Sender: RANBAXY
  Company Number: IT-SUN PHARMACEUTICAL INDUSTRIES LTD-2024RR-455560

PATIENT
  Age: 21 Year
  Sex: Male
  Weight: 70 kg

DRUGS (1)
  1. SERTRALINE [Suspect]
     Active Substance: SERTRALINE HYDROCHLORIDE
     Indication: Mixed anxiety and depressive disorder
     Dosage: 100 MILLIGRAM
     Route: 048
     Dates: start: 201311, end: 201510

REACTIONS (6)
  - Erectile dysfunction [Recovered/Resolved]
  - Mental impairment [Recovered/Resolved]
  - Loss of libido [Recovered/Resolved]
  - Anhedonia [Recovered/Resolved]
  - Sexual dysfunction [Recovered/Resolved]
  - Brain fog [Recovered/Resolved]
